FAERS Safety Report 9315395 (Version 2)
Quarter: 2013Q2

REPORT INFORMATION
  Report Type: Spontaneous
  Country: US (occurrence: US)
  Receive Date: 20130529
  Receipt Date: 20130530
  Transmission Date: 20140414
  Serious: Yes (Other)
  Sender: FDA-Public Use
  Company Number: US-ABBOTT-13P-163-1094423-00

PATIENT
  Age: 37 Year
  Sex: Female
  Weight: 54.48 kg

DRUGS (4)
  1. HUMIRA [Suspect]
     Indication: CROHN^S DISEASE
     Route: 058
     Dates: start: 200604, end: 201104
  2. HUMIRA [Suspect]
     Route: 058
     Dates: start: 201305, end: 201305
  3. FISH OIL [Concomitant]
     Indication: ARTHROPATHY
  4. IMURAN [Concomitant]
     Indication: CROHN^S DISEASE

REACTIONS (7)
  - Systemic lupus erythematosus [Unknown]
  - Antinuclear antibody positive [Not Recovered/Not Resolved]
  - Pain [Recovering/Resolving]
  - Pyrexia [Recovered/Resolved]
  - Myalgia [Unknown]
  - Arthralgia [Unknown]
  - Superinfection [Unknown]
